FAERS Safety Report 6473839-9 (Version None)
Quarter: 2009Q4

REPORT INFORMATION
  Report Type: 
  Country: None (occurrence: None)
  Receive Date: 20091204
  Receipt Date: 20091126
  Transmission Date: 20100525
  Serious: Yes (Other)
  Sender: FDA-Public Use
  Company Number: GR-ROCHE-672072

PATIENT
  Age: 25 Year
  Sex: Male

DRUGS (1)
  1. ISOTRETINOIN [Suspect]
     Route: 065

REACTIONS (3)
  - ACUTE LYMPHOCYTIC LEUKAEMIA [None]
  - DERMATITIS ACNEIFORM [None]
  - MYELOPROLIFERATIVE DISORDER [None]
